FAERS Safety Report 11693555 (Version 2)
Quarter: 2016Q1

REPORT INFORMATION
  Report Type: Spontaneous
  Country: US (occurrence: US)
  Receive Date: 20151103
  Receipt Date: 20160211
  Transmission Date: 20160525
  Serious: No
  Sender: FDA-Public Use
  Company Number: PHHY2015US132583

PATIENT
  Sex: Male

DRUGS (3)
  1. VOTRIENT [Suspect]
     Active Substance: PAZOPANIB HYDROCHLORIDE
     Indication: BONE CANCER
     Dosage: 200 MG, TID
     Route: 065
     Dates: start: 20150710
  2. VOTRIENT [Suspect]
     Active Substance: PAZOPANIB HYDROCHLORIDE
     Indication: OSTEOSARCOMA
  3. VITAMIIN C [Concomitant]
     Active Substance: ASCORBIC ACID
     Indication: PRODUCT USED FOR UNKNOWN INDICATION
     Route: 065

REACTIONS (8)
  - Lip disorder [Unknown]
  - Fluid intake reduced [Unknown]
  - Vomiting [Unknown]
  - Rash [Unknown]
  - Diarrhoea [Recovered/Resolved]
  - Liver function test increased [Unknown]
  - Neutrophil count abnormal [Unknown]
  - Dehydration [Unknown]
